FAERS Safety Report 4703428-5 (Version None)
Quarter: 2005Q2

REPORT INFORMATION
  Report Type: 
  Country: None (occurrence: None)
  Receive Date: 20050629
  Receipt Date: 20050615
  Transmission Date: 20051028
  Serious: Yes (Hospitalization, Other)
  Sender: FDA-Public Use
  Company Number: US_0506118593

PATIENT
  Age: 47 Year
  Sex: Male
  Weight: 105 kg

DRUGS (14)
  1. ZYPREXA [Suspect]
     Indication: ANXIETY
     Dosage: 10 MG
     Dates: start: 20020219, end: 20041025
  2. CELECOXIB [Concomitant]
  3. NAPROXEN SODIUM [Concomitant]
  4. ALPRAZOLAM [Concomitant]
  5. TIAZAC [Concomitant]
  6. CLONIDINE [Concomitant]
  7. HYDROXYZINE [Concomitant]
  8. TRIAMTERENE [Concomitant]
  9. PAROXETINE HCL [Concomitant]
  10. CLORAZEPATE DIPOTASSIUM [Concomitant]
  11. MICONAZOLE NITRATE [Concomitant]
  12. DIAZEPAM [Concomitant]
  13. METFORMIN [Concomitant]
  14. ALTACE [Concomitant]

REACTIONS (23)
  - ABDOMINAL PAIN [None]
  - ABDOMINAL PAIN UPPER [None]
  - CONVULSION [None]
  - DEPRESSION [None]
  - DIABETES MELLITUS [None]
  - DRUG HYPERSENSITIVITY [None]
  - GALLBLADDER ENLARGEMENT [None]
  - HEPATOMEGALY [None]
  - INTENTIONAL MISUSE [None]
  - LOBAR PNEUMONIA [None]
  - LYMPHOCYTE COUNT DECREASED [None]
  - MEAN CELL VOLUME INCREASED [None]
  - MONOCYTE COUNT INCREASED [None]
  - MYOCARDIAL ISCHAEMIA [None]
  - OSTEOARTHRITIS [None]
  - OVERDOSE [None]
  - RIB FRACTURE [None]
  - SPINAL OSTEOARTHRITIS [None]
  - SPLENOMEGALY [None]
  - SUICIDAL IDEATION [None]
  - SUICIDE ATTEMPT [None]
  - WEIGHT DECREASED [None]
  - WEIGHT INCREASED [None]
